FAERS Safety Report 8912997 (Version 1)
Quarter: 2012Q4

REPORT INFORMATION
  Report Type: Spontaneous
  Country: US (occurrence: None)
  Receive Date: 20121114
  Receipt Date: 20121114
  Transmission Date: 20130627
  Serious: Yes (Life-Threatening, Hospitalization, Disabling)
  Sender: FDA-Public Use
  Company Number: None

PATIENT
  Age: 48 Year
  Sex: Female
  Weight: 97.98 kg

DRUGS (11)
  1. SAPHRIS [Suspect]
     Indication: POST-TRAUMATIC STRESS DISORDER
  2. LAMICTAL [Concomitant]
  3. TRAZODONE [Concomitant]
  4. EFFEXOR [Concomitant]
  5. TOPAMAX [Concomitant]
  6. SIMVASTATIN [Concomitant]
  7. NEXIUM [Concomitant]
  8. FLONASE [Concomitant]
  9. DIOVAN/HCTZ [Concomitant]
  10. METFORMIN [Concomitant]
  11. POTASSIUM CITRATE ER [Concomitant]

REACTIONS (3)
  - Pulmonary embolism [None]
  - Post procedural complication [None]
  - Knee operation [None]
